FAERS Safety Report 4751456-6 (Version None)
Quarter: 2005Q3

REPORT INFORMATION
  Report Type: 
  Country: None (occurrence: None)
  Receive Date: 20050824
  Receipt Date: 20050713
  Transmission Date: 20060218
  Serious: Yes (Hospitalization, Other)
  Sender: FDA-Public Use
  Company Number: US-MERCK-0507USA01912

PATIENT
  Age: 64 Year
  Sex: Male
  Weight: 111 kg

DRUGS (1)
  1. VIOXX [Suspect]
     Indication: ARTHRITIS
     Route: 048
     Dates: end: 20030923

REACTIONS (4)
  - ARTERIAL OCCLUSIVE DISEASE [None]
  - ARTHRITIS [None]
  - CEREBROVASCULAR ACCIDENT [None]
  - DEPRESSION [None]
